FAERS Safety Report 5159598-0 (Version None)
Quarter: 2006Q4

REPORT INFORMATION
  Report Type: 
  Country: None (occurrence: None)
  Receive Date: 20061120
  Receipt Date: 20061107
  Transmission Date: 20070319
  Serious: Yes (Other)
  Sender: FDA-Public Use
  Company Number: 32078

PATIENT
  Age: 37 Year
  Sex: Male

DRUGS (1)
  1. DICYCLOMINE HCL INJ. USP 2ML/VIAL 10MG/ML - BEDFORD LABS, INC. [Suspect]
     Indication: FOOD POISONING
     Dosage: 20 MG/IV/ X1
     Route: 042
     Dates: start: 20061107

REACTIONS (2)
  - INCORRECT ROUTE OF DRUG ADMINISTRATION [None]
  - MEDICATION ERROR [None]
